FAERS Safety Report 4285675-2 (Version None)
Quarter: 2004Q1

REPORT INFORMATION
  Report Type: 
  Country: None (occurrence: None)
  Receive Date: 20040203
  Receipt Date: 20040122
  Transmission Date: 20041129
  Serious: Yes (Congenital Anomaly, Other)
  Sender: FDA-Public Use
  Company Number: 2003-UK-00445UK

PATIENT
  Sex: Female

DRUGS (3)
  1. NEVIRAPINE (EU/1/97/055/001) (NEVARAPINE ) (NR) [Suspect]
     Indication: RETROVIRAL INFECTION
     Dosage: SEE IMAGE
     Route: 015
     Dates: start: 20030224, end: 20030309
  2. NEVIRAPINE (EU/1/97/055/001) (NEVARAPINE ) (NR) [Suspect]
     Indication: RETROVIRAL INFECTION
     Dosage: SEE IMAGE
     Route: 015
     Dates: start: 20030310
  3. COMBIVIR [Suspect]
     Indication: RETROVIRAL INFECTION
     Dosage: 2 ANZ (ANZ , NOT REPORTED)
     Dates: start: 20030224, end: 20030502

REACTIONS (2)
  - HIP DYSPLASIA [None]
  - MATERNAL DRUGS AFFECTING FOETUS [None]
